FAERS Safety Report 12089224 (Version 1)
Quarter: 2016Q1

REPORT INFORMATION
  Report Type: Spontaneous
  Country: US (occurrence: US)
  Receive Date: 20160218
  Receipt Date: 20160218
  Transmission Date: 20160526
  Serious: No
  Sender: FDA-Public Use
  Company Number: US-NEPHRON PHARMACEUTICALS CORPORATION-1048059

PATIENT
  Age: 88 Year
  Sex: Female
  Weight: 75 kg

DRUGS (7)
  1. VITAMIN A [Concomitant]
     Active Substance: VITAMIN A
  2. LASIX [Concomitant]
     Active Substance: FUROSEMIDE
  3. IPRATROPIUM BROMIDE AND ALBUTEROL SULFATE [Suspect]
     Active Substance: ALBUTEROL SULFATE\IPRATROPIUM BROMIDE
     Indication: SINUS DISORDER
     Route: 055
  4. POTASSIUM [Concomitant]
     Active Substance: POTASSIUM
  5. ATENOLOL. [Concomitant]
     Active Substance: ATENOLOL
  6. ASPIRIN. [Concomitant]
     Active Substance: ASPIRIN
  7. LYRICA [Concomitant]
     Active Substance: PREGABALIN

REACTIONS (2)
  - Dry throat [Unknown]
  - Nasal dryness [Unknown]

NARRATIVE: CASE EVENT DATE: 20150702
